FAERS Safety Report 5179339-0 (Version None)
Quarter: 2006Q4

REPORT INFORMATION
  Report Type: 
  Country: None (occurrence: None)
  Receive Date: 20061219
  Receipt Date: 20061127
  Transmission Date: 20070319
  Serious: Yes (Hospitalization)
  Sender: FDA-Public Use
  Company Number: JP-JPN-A200605036

PATIENT
  Age: 54 Year
  Sex: Male
  Weight: 71 kg

DRUGS (12)
  1. EPZICOM [Suspect]
     Indication: ACQUIRED IMMUNODEFICIENCY SYNDROME
     Route: 048
     Dates: start: 20061111, end: 20061125
  2. REYATAZ [Concomitant]
     Indication: ACQUIRED IMMUNODEFICIENCY SYNDROME
     Route: 048
     Dates: start: 20061111
  3. FUNGIZONE [Concomitant]
     Route: 048
  4. VALIXA [Concomitant]
     Indication: CYTOMEGALOVIRUS INFECTION
     Dosage: 900MG PER DAY
     Route: 048
     Dates: start: 20061108
  5. BACTRIM [Concomitant]
     Indication: ANTIFUNGAL PROPHYLAXIS
     Route: 048
     Dates: start: 20060913
  6. CHINESE MEDICINE [Concomitant]
     Indication: NASOPHARYNGITIS
     Route: 048
     Dates: start: 20061123, end: 20061124
  7. NOVORAPID [Concomitant]
     Indication: DIABETES MELLITUS
     Route: 058
     Dates: start: 20061102
  8. NEUTROGIN [Concomitant]
     Indication: LEUKOPENIA
     Dosage: 100MG PER DAY
     Route: 058
     Dates: start: 20061123
  9. METFORMIN HYDROCHLORIDE [Concomitant]
  10. NORVIR [Concomitant]
     Indication: ACQUIRED IMMUNODEFICIENCY SYNDROME
     Dosage: 100MG PER DAY
     Route: 048
     Dates: start: 20061125
  11. AZITHROMYCIN [Concomitant]
     Indication: OPPORTUNISTIC INFECTION PROPHYLAXIS
     Route: 048
     Dates: start: 20060915
  12. TRUVADA [Concomitant]
     Indication: ACQUIRED IMMUNODEFICIENCY SYNDROME
     Route: 048
     Dates: start: 20061125

REACTIONS (13)
  - ALANINE AMINOTRANSFERASE INCREASED [None]
  - ASPARTATE AMINOTRANSFERASE INCREASED [None]
  - BLOOD GLUCOSE FLUCTUATION [None]
  - BLOOD LACTATE DEHYDROGENASE INCREASED [None]
  - BLOOD URIC ACID INCREASED [None]
  - CHILLS [None]
  - HEPATIC FUNCTION ABNORMAL [None]
  - HYPERBILIRUBINAEMIA [None]
  - HYPERSENSITIVITY [None]
  - PRURITUS [None]
  - PYREXIA [None]
  - RASH [None]
  - RENAL IMPAIRMENT [None]
